FAERS Safety Report 23081729 (Version 1)
Quarter: 2023Q4

REPORT INFORMATION
  Report Type: Spontaneous
  Country: ES (occurrence: ES)
  Receive Date: 20231019
  Receipt Date: 20231019
  Transmission Date: 20240109
  Serious: Yes (Hospitalization, Other)
  Sender: FDA-Public Use
  Company Number: ES-AMAROX PHARMA-AMR2023ES02532

PATIENT
  Age: 16 Year
  Sex: Male

DRUGS (4)
  1. OMEPRAZOLE [Interacting]
     Active Substance: OMEPRAZOLE
     Indication: Prophylaxis against gastrointestinal ulcer
     Dosage: 20 MILLIGRAM, QD
     Route: 065
  2. TACROLIMUS [Interacting]
     Active Substance: TACROLIMUS
     Indication: Immunosuppressant drug therapy
     Dosage: 0.5 MG - 0-1 MG (IMMUNOSUPPRESSANT PHARMACOTHERAPY CONSISTING OF IMMEDIATE-RELEASE TAC (0.5 MG-0-1 M
     Route: 048
  3. MYCOPHENOLIC ACID [Concomitant]
     Active Substance: MYCOPHENOLIC ACID
     Indication: Immunosuppressant drug therapy
     Dosage: 360 MILLIGRAM, BID
     Route: 065
  4. PREDNISONE [Concomitant]
     Active Substance: PREDNISONE
     Indication: Immunosuppressant drug therapy
     Dosage: 5 MILLIGRAM, QD
     Route: 065

REACTIONS (6)
  - Drug-genetic interaction [Recovered/Resolved]
  - Chronic kidney disease [Recovering/Resolving]
  - Labelled drug-drug interaction issue [Recovered/Resolved]
  - Myalgia [Recovering/Resolving]
  - Diarrhoea [Recovering/Resolving]
  - Drug level fluctuating [Recovering/Resolving]
